FAERS Safety Report 16440278 (Version 1)
Quarter: 2019Q2

REPORT INFORMATION
  Report Type: Spontaneous
  Country: IT (occurrence: IT)
  Receive Date: 20190617
  Receipt Date: 20190617
  Transmission Date: 20190711
  Serious: Yes (Hospitalization)
  Sender: FDA-Public Use
  Company Number: IT-ASTRAZENECA-2019SE84722

PATIENT
  Age: 52 Year
  Sex: Female
  Weight: 62 kg

DRUGS (2)
  1. OLAPARIB. [Suspect]
     Active Substance: OLAPARIB
     Indication: OVARIAN CANCER
     Route: 048
     Dates: start: 20181206, end: 20190328
  2. DIBASE [Concomitant]
     Active Substance: CHOLECALCIFEROL
     Indication: OSTEOPENIA
     Route: 048
     Dates: start: 20030515

REACTIONS (8)
  - Dyspnoea exertional [Recovering/Resolving]
  - Asthenia [Recovering/Resolving]
  - Alveolitis [Recovering/Resolving]
  - Hypogammaglobulinaemia [Recovering/Resolving]
  - Pyrexia [Recovering/Resolving]
  - Anaemia [Recovering/Resolving]
  - Bone pain [Recovering/Resolving]
  - Cough [Recovering/Resolving]

NARRATIVE: CASE EVENT DATE: 20190310
